FAERS Safety Report 6529084-1 (Version None)
Quarter: 2010Q1

REPORT INFORMATION
  Report Type: 
  Country: None (occurrence: None)
  Receive Date: 20100107
  Receipt Date: 20091229
  Transmission Date: 20100710
  Serious: Yes (Hospitalization)
  Sender: FDA-Public Use
  Company Number: US-BIOGENIDEC-2007BI002075

PATIENT
  Age: 51 Year
  Sex: Female
  Weight: 77 kg

DRUGS (2)
  1. AVONEX [Suspect]
     Indication: MULTIPLE SCLEROSIS
     Route: 030
     Dates: start: 20010614
  2. CLARITIN [Concomitant]
     Indication: MULTIPLE ALLERGIES

REACTIONS (5)
  - ARTHRALGIA [None]
  - ARTHROPOD STING [None]
  - FALL [None]
  - HIP FRACTURE [None]
  - MULTIPLE SCLEROSIS RELAPSE [None]
